FAERS Safety Report 6396795-0 (Version None)
Quarter: 2009Q4

REPORT INFORMATION
  Report Type: 
  Country: None (occurrence: None)
  Receive Date: 20091012
  Receipt Date: 20090723
  Transmission Date: 20100525
  Serious: No
  Sender: FDA-Public Use
  Company Number: US-ASTRAZENECA-2009SE05861

PATIENT
  Age: 41 Year
  Sex: Female
  Weight: 77.1 kg

DRUGS (2)
  1. SYMBICORT [Suspect]
     Route: 055
  2. BENICAR [Concomitant]

REACTIONS (3)
  - LIP SWELLING [None]
  - PHARYNGEAL OEDEMA [None]
  - SWOLLEN TONGUE [None]
